FAERS Safety Report 7159535-3 (Version None)
Quarter: 2010Q4

REPORT INFORMATION
  Report Type: 
  Country: None (occurrence: None)
  Receive Date: 20101214
  Receipt Date: 20101015
  Transmission Date: 20110411
  Serious: No
  Sender: FDA-Public Use
  Company Number: US-ASTRAZENECA-2010SE43886

PATIENT
  Age: 55 Year
  Sex: Male
  Weight: 153.8 kg

DRUGS (4)
  1. CRESTOR [Suspect]
     Indication: HYPERLIPIDAEMIA
     Route: 048
  2. LISINOPRIL [Concomitant]
     Indication: HYPERTENSION
     Route: 048
  3. METFORMIN [Concomitant]
     Indication: DIABETES MELLITUS
     Route: 048
  4. DARVOCET [Concomitant]
     Indication: BACK PAIN
     Route: 048

REACTIONS (3)
  - BLISTER [None]
  - ERYTHEMA [None]
  - PRURITUS [None]
